FAERS Safety Report 16012852 (Version 1)
Quarter: 2019Q1

REPORT INFORMATION
  Report Type: Spontaneous
  Country: IN (occurrence: IN)
  Receive Date: 20190227
  Receipt Date: 20190227
  Transmission Date: 20190418
  Serious: Yes (Death)
  Sender: FDA-Public Use
  Company Number: PHHY2019IN042417

PATIENT
  Age: 3 Day
  Weight: 3.2 kg

DRUGS (1)
  1. EVEROLIMUS. [Suspect]
     Active Substance: EVEROLIMUS
     Indication: RHABDOMYOMA
     Dosage: 4.5 MG/M2, QW (DOSE WAS STARTED IN DAILY DIVIDED DOSE)
     Route: 048

REACTIONS (2)
  - Sudden cardiac death [Fatal]
  - Product use in unapproved indication [Unknown]
